FAERS Safety Report 7513273-3 (Version None)
Quarter: 2011Q2

REPORT INFORMATION
  Report Type: 
  Country: None (occurrence: None)
  Receive Date: 20110531
  Receipt Date: 20110519
  Transmission Date: 20111010
  Serious: Yes (Hospitalization)
  Sender: FDA-Public Use
  Company Number: BR-ROCHE-778491

PATIENT
  Sex: Male
  Weight: 62 kg

DRUGS (9)
  1. TOCILIZUMAB [Suspect]
     Dosage: DOSING AMOUNT UNSPECIFIED
     Route: 042
     Dates: start: 20100801, end: 20100801
  2. TOCILIZUMAB [Suspect]
     Dosage: DOSING AMOUNT UNSPECIFIED
     Route: 042
     Dates: start: 20100901, end: 20100901
  3. TOCILIZUMAB [Suspect]
     Dosage: DOSING AMOUNT UNSPECIFIED
     Route: 042
     Dates: start: 20100701, end: 20100701
  4. TOCILIZUMAB [Suspect]
     Dosage: DOSING AMOUNT UNSPECIFIED
     Route: 042
     Dates: start: 20101001, end: 20101001
  5. PREDNISONE [Concomitant]
  6. TOCILIZUMAB [Suspect]
     Indication: RHEUMATOID ARTHRITIS
     Dosage: DOSING AMOUNT UNSPECIFIED
     Route: 042
     Dates: start: 20100601, end: 20100601
  7. TOCILIZUMAB [Suspect]
     Dosage: DOSING AMOUNT UNSPECIFIED
     Route: 042
     Dates: start: 20101101, end: 20101101
  8. CHLOROQUINE [Concomitant]
  9. TOCILIZUMAB [Suspect]
     Dosage: DOSING AMOUNT UNSPECIFIED
     Route: 042
     Dates: start: 20101201

REACTIONS (3)
  - DIARRHOEA [None]
  - WEIGHT DECREASED [None]
  - LABYRINTHITIS [None]
